FAERS Safety Report 15462222 (Version 3)
Quarter: 2019Q1

REPORT INFORMATION
  Report Type: Report from Study
  Country: BR (occurrence: BR)
  Receive Date: 20181003
  Receipt Date: 20190102
  Transmission Date: 20190417
  Serious: Yes (Other)
  Sender: FDA-Public Use
  Company Number: BR-AMGEN-BRACT2011047449

PATIENT
  Age: 35 Year
  Sex: Female
  Weight: 75 kg

DRUGS (9)
  1. PARACETAMOL [Concomitant]
     Active Substance: ACETAMINOPHEN
     Dosage: 500 MG, AS NEEDED
  2. ETANERCEPT [Suspect]
     Active Substance: ETANERCEPT
     Indication: RHEUMATOID ARTHRITIS
     Dosage: 50 MG, QWK
     Route: 065
  3. IBUPROFEN. [Concomitant]
     Active Substance: IBUPROFEN
     Dosage: 600 MG, 2X/DAY
  4. OMEPRAZOLE. [Concomitant]
     Active Substance: OMEPRAZOLE
     Dosage: UNK
     Route: 065
  5. METHOTREXATE. [Concomitant]
     Active Substance: METHOTREXATE
     Dosage: 2.5 MG, WEEKLY
  6. VELIJA [Concomitant]
     Active Substance: DULOXETINE HYDROCHLORIDE
     Dosage: UNK
     Route: 065
  7. SULFASALAZINE. [Concomitant]
     Active Substance: SULFASALAZINE
     Dosage: 500 MG, 2X/DAY
  8. ETANERCEPT [Suspect]
     Active Substance: ETANERCEPT
     Dosage: 50 MG, QWK
     Route: 058
     Dates: start: 201202
  9. CYCLOBENZAPRINE. [Concomitant]
     Active Substance: CYCLOBENZAPRINE
     Dosage: UNK

REACTIONS (22)
  - Pyrexia [Unknown]
  - Head discomfort [Unknown]
  - Swelling [Unknown]
  - Blood pressure decreased [Unknown]
  - Presyncope [Unknown]
  - Pruritus [Recovered/Resolved]
  - Rash macular [Unknown]
  - Shock symptom [Unknown]
  - Asthenia [Unknown]
  - Onychomadesis [Unknown]
  - Stress [Unknown]
  - Injection site pain [Unknown]
  - Fall [Unknown]
  - Immobile [Unknown]
  - Feeling abnormal [Unknown]
  - Tremor [Unknown]
  - Mood altered [Unknown]
  - Injection site hypersensitivity [Recovered/Resolved]
  - Skin depigmentation [Recovered/Resolved]
  - Wound [Unknown]
  - Nail atrophy [Unknown]
  - Lack of injection site rotation [Unknown]

NARRATIVE: CASE EVENT DATE: 201107
